FAERS Safety Report 8083723-5 (Version None)
Quarter: 2012Q1

REPORT INFORMATION
  Report Type: 
  Country: None (occurrence: None)
  Receive Date: 20120127
  Receipt Date: 20110124
  Transmission Date: 20120608
  Serious: No
  Sender: FDA-Public Use
  Company Number: US-ABBOTT-11P-163-0700096-00

PATIENT
  Age: 34 Year
  Sex: Female

DRUGS (6)
  1. BENACAR [Concomitant]
     Indication: HYPERTENSION
  2. HUMIRA [Suspect]
     Indication: RHEUMATOID ARTHRITIS
     Dates: start: 20110117
  3. MULTIVITAMIN [Concomitant]
     Indication: RHEUMATOID ARTHRITIS
  4. GLUCOSAMINE [Concomitant]
     Indication: RHEUMATOID ARTHRITIS
  5. FOLIC ACID [Concomitant]
     Indication: RHEUMATOID ARTHRITIS
  6. METHOTREXATE [Concomitant]
     Indication: RHEUMATOID ARTHRITIS
     Dosage: 6 TABLETS

REACTIONS (6)
  - INJECTION SITE RASH [None]
  - INJECTION SITE ERYTHEMA [None]
  - PRURITUS [None]
  - RASH ERYTHEMATOUS [None]
  - INJECTION SITE SWELLING [None]
  - RASH [None]
